FAERS Safety Report 20669920 (Version 1)
Quarter: 2022Q2

REPORT INFORMATION
  Report Type: Spontaneous
  Country: US (occurrence: US)
  Receive Date: 20220404
  Receipt Date: 20220404
  Transmission Date: 20220721
  Serious: Yes (Other)
  Sender: FDA-Public Use
  Company Number: US-PFIZER INC-202101326853

PATIENT
  Age: 49 Year
  Sex: Female

DRUGS (7)
  1. XELJANZ XR [Suspect]
     Active Substance: TOFACITINIB CITRATE
     Indication: Rheumatoid arthritis
     Dosage: 11 MG, DAILY
     Route: 048
     Dates: start: 2020
  2. VITAMIN D3 [Concomitant]
     Active Substance: CHOLECALCIFEROL
     Dosage: UNK
  3. MINERALS\VITAMINS [Concomitant]
     Active Substance: MINERALS\VITAMINS
     Dosage: UNK
  4. METOPROLOL [Concomitant]
     Active Substance: METOPROLOL
     Dosage: UNK
  5. TOBREX [Concomitant]
     Active Substance: TOBRAMYCIN
     Dosage: UNK
  6. BACITRACIN ZINC AND POLYMYXIN B SULFATE [Concomitant]
     Active Substance: BACITRACIN ZINC\POLYMYXIN B SULFATE
     Dosage: UNK
  7. TOZINAMERAN [Concomitant]
     Active Substance: TOZINAMERAN
     Dosage: UNK

REACTIONS (7)
  - Eye allergy [Unknown]
  - Ocular hyperaemia [Unknown]
  - Product dose omission in error [Unknown]
  - Headache [Not Recovered/Not Resolved]
  - Diarrhoea [Unknown]
  - Blood cholesterol increased [Not Recovered/Not Resolved]
  - Intentional product misuse [Unknown]
